FAERS Safety Report 17652079 (Version 1)
Quarter: 2020Q2

REPORT INFORMATION
  Report Type: Spontaneous
  Country: DE (occurrence: DE)
  Receive Date: 20200409
  Receipt Date: 20200409
  Transmission Date: 20200713
  Serious: Yes (Hospitalization)
  Sender: FDA-Public Use
  Company Number: DE-SA-2020SA089604

PATIENT
  Age: 41 Year
  Sex: Female

DRUGS (3)
  1. VEMURAFENIB. [Suspect]
     Active Substance: VEMURAFENIB
     Dosage: NK MG, PAUSED SINCE 23122019
  2. ENOXAPARIN SODIUM. [Suspect]
     Active Substance: ENOXAPARIN SODIUM
     Dosage: 60 MG
     Route: 058
  3. COBIMETINIB. [Suspect]
     Active Substance: COBIMETINIB
     Dosage: NK MG, PAUSED SINCE 23122019

REACTIONS (4)
  - Dry skin [Unknown]
  - Rash [Unknown]
  - Blister [Unknown]
  - Urticaria [Unknown]
